FAERS Safety Report 25709663 (Version 1)
Quarter: 2025Q3

REPORT INFORMATION
  Report Type: Spontaneous
  Country: US (occurrence: US)
  Receive Date: 20250821
  Receipt Date: 20250821
  Transmission Date: 20251020
  Serious: No
  Sender: AUROBINDO
  Company Number: US-AUROBINDO-AUR-APL-2025-036712

PATIENT
  Age: 87 Year
  Sex: Male
  Weight: 59.874 kg

DRUGS (1)
  1. DICLOFENAC SODIUM [Suspect]
     Active Substance: DICLOFENAC SODIUM
     Indication: Joint injury
     Dosage: UNK, TWO TIMES A DAY
     Route: 065
     Dates: start: 20250704

REACTIONS (2)
  - Device malfunction [Unknown]
  - Device difficult to use [Unknown]
